FAERS Safety Report 15561622 (Version 1)
Quarter: 2018Q4

REPORT INFORMATION
  Report Type: Spontaneous
  Country: US (occurrence: US)
  Receive Date: 20181029
  Receipt Date: 20181029
  Transmission Date: 20190205
  Serious: No
  Sender: FDA-Public Use
  Company Number: US-GLAXOSMITHKLINE-US2018189038

PATIENT
  Age: 84 Year
  Sex: Female

DRUGS (1)
  1. FLONASE [Suspect]
     Active Substance: FLUTICASONE PROPIONATE
     Indication: HYPERSENSITIVITY
     Dosage: UNK
     Dates: start: 20180901

REACTIONS (3)
  - Nasal disorder [Recovering/Resolving]
  - Acne [Unknown]
  - Nasal mucosal disorder [Unknown]

NARRATIVE: CASE EVENT DATE: 20180904
